FAERS Safety Report 25228298 (Version 2)
Quarter: 2025Q2

REPORT INFORMATION
  Report Type: Spontaneous
  Country: US (occurrence: US)
  Receive Date: 20250423
  Receipt Date: 20250509
  Transmission Date: 20250717
  Serious: No
  Sender: ROCHE
  Company Number: US-ROCHE-10000256714

PATIENT
  Age: 72 Year
  Sex: Female
  Weight: 136.07 kg

DRUGS (10)
  1. ACTEMRA [Suspect]
     Active Substance: TOCILIZUMAB
     Indication: Rheumatoid arthritis
     Dosage: ON WEDNESDAY^S
     Route: 065
     Dates: start: 202503
  2. ACTEMRA [Suspect]
     Active Substance: TOCILIZUMAB
     Indication: Rheumatoid arthritis
     Route: 042
     Dates: end: 2025
  3. FOLIC ACID [Concomitant]
     Active Substance: FOLIC ACID
     Dosage: ONCE PER DAY, 6 DAYS PER WEEK
     Route: 048
  4. UNSPECIFIED INGREDIENT [Concomitant]
     Active Substance: UNSPECIFIED INGREDIENT
     Indication: Blood cholesterol
     Route: 048
  5. LEVOTHYROXINE [Concomitant]
     Active Substance: LEVOTHYROXINE
     Indication: Hypothyroidism
     Route: 048
  6. VITAMIN D [Concomitant]
     Active Substance: VITAMIN D NOS
     Indication: Rheumatoid arthritis
     Dosage: 2 PILLS, ONCE A DAY
     Route: 048
  7. MAGNESIUM GLYCINATE [Concomitant]
     Active Substance: MAGNESIUM GLYCINATE
     Route: 048
  8. MAGNESIUM [Concomitant]
     Active Substance: MAGNESIUM
     Dosage: NIGHTLY
     Route: 061
  9. VITAMINS [Concomitant]
     Active Substance: VITAMINS
  10. METHOTREXATE [Concomitant]
     Active Substance: METHOTREXATE
     Indication: Rheumatoid arthritis
     Dosage: 6 PILLS ONCE A WEEK
     Route: 048

REACTIONS (11)
  - Blood cholesterol increased [Recovered/Resolved]
  - Pain [Recovered/Resolved]
  - Trichorrhexis [Recovering/Resolving]
  - Hair texture abnormal [Recovering/Resolving]
  - Grief reaction [Not Recovered/Not Resolved]
  - Product dose omission issue [Unknown]
  - Product administered at inappropriate site [Unknown]
  - Wrong technique in product usage process [Unknown]
  - Device use error [Unknown]
  - Device issue [Unknown]
  - Product complaint [Unknown]

NARRATIVE: CASE EVENT DATE: 20250301
